FAERS Safety Report 6347718-1 (Version None)
Quarter: 2009Q3

REPORT INFORMATION
  Report Type: 
  Country: None (occurrence: None)
  Receive Date: 20090910
  Receipt Date: 20090908
  Transmission Date: 20100115
  Serious: Yes (Death)
  Sender: FDA-Public Use
  Company Number: GB-JNJFOC-20090708350

PATIENT
  Sex: Female

DRUGS (5)
  1. DURAGESIC-100 [Suspect]
     Indication: SPONDYLITIS
     Route: 062
     Dates: start: 20070305, end: 20090513
  2. AMITRIPTYLINE [Concomitant]
     Indication: DEPRESSION
     Dates: start: 20010112, end: 20090513
  3. MELOXICAM [Concomitant]
     Indication: NECK PAIN
     Dates: start: 20050121, end: 20090513
  4. CANDESARTAN CILEXETIL [Concomitant]
     Indication: HYPERTENSION
     Dates: start: 20041119, end: 20090513
  5. GABAPENTIN [Concomitant]
     Indication: PAIN
     Dates: start: 20080423, end: 20090513

REACTIONS (4)
  - DRUG ADMINISTRATION ERROR [None]
  - OVERDOSE [None]
  - PRODUCT QUALITY ISSUE [None]
  - WRONG TECHNIQUE IN DRUG USAGE PROCESS [None]
